FAERS Safety Report 6638179-3 (Version None)
Quarter: 2010Q1

REPORT INFORMATION
  Report Type: 
  Country: None (occurrence: None)
  Receive Date: 20100312
  Receipt Date: 20100301
  Transmission Date: 20100710
  Serious: Yes (Other)
  Sender: FDA-Public Use
  Company Number: 238506K09USA

PATIENT
  Age: 29 Year
  Sex: Female

DRUGS (4)
  1. REBIF [Suspect]
     Indication: MULTIPLE SCLEROSIS
     Dosage: 44 MCG, 3 IN 1 WEEKS,SUBCUTANEOUS
     Route: 058
     Dates: start: 20070718
  2. IBUPROFEN [Concomitant]
  3. BACLOFEN [Concomitant]
  4. TRAZODONE HCL [Concomitant]

REACTIONS (2)
  - GRAND MAL CONVULSION [None]
  - MIGRAINE [None]
